FAERS Safety Report 11474076 (Version 1)
Quarter: 2015Q3

REPORT INFORMATION
  Report Type: Spontaneous
  Country: US (occurrence: None)
  Receive Date: 20150908
  Receipt Date: 20150908
  Transmission Date: 20151125
  Serious: No
  Sender: FDA-Public Use
  Company Number: None

PATIENT
  Age: 48 Year
  Sex: Female
  Weight: 65.77 kg

DRUGS (2)
  1. DAILY MULTIVITAMINS [Concomitant]
  2. KEFLEX [Suspect]
     Active Substance: CEPHALEXIN
     Indication: PHARYNGITIS STREPTOCOCCAL
     Dosage: 1 TWICE DAILY TAKEN BY MOUTH
     Route: 048
     Dates: start: 20150903, end: 20150905

REACTIONS (8)
  - Rash [None]
  - Restlessness [None]
  - Night sweats [None]
  - Unevaluable event [None]
  - Abnormal dreams [None]
  - Pruritus [None]
  - Blister [None]
  - Burning sensation [None]

NARRATIVE: CASE EVENT DATE: 20150905
